FAERS Safety Report 13280665 (Version 1)
Quarter: 2017Q1

REPORT INFORMATION
  Report Type: Spontaneous
  Country: US (occurrence: US)
  Receive Date: 20170301
  Receipt Date: 20170301
  Transmission Date: 20170428
  Serious: No
  Sender: FDA-Public Use
  Company Number: PHEH2017US006064

PATIENT
  Sex: Male

DRUGS (1)
  1. VOTRIENT [Suspect]
     Active Substance: PAZOPANIB HYDROCHLORIDE
     Indication: MALAISE
     Dosage: 400 MG, QD
     Route: 048
     Dates: start: 20170131

REACTIONS (2)
  - Dysgeusia [Unknown]
  - Product use issue [Unknown]
